FAERS Safety Report 21388493 (Version 1)
Quarter: 2022Q3

REPORT INFORMATION
  Report Type: Spontaneous
  Country: GB (occurrence: GB)
  Receive Date: 20220928
  Receipt Date: 20220928
  Transmission Date: 20221027
  Serious: Yes (Disabling)
  Sender: FDA-Public Use
  Company Number: GB-MHRA-MED-202209252311499840-MJYRK

PATIENT
  Age: 47 Year
  Sex: Male
  Weight: 85 kg

DRUGS (2)
  1. EMTRICITABINE [Suspect]
     Active Substance: EMTRICITABINE
     Indication: HIV infection
     Dosage: 245 MG, QD
     Route: 065
     Dates: start: 20220722, end: 20220918
  2. TIVICAY [Suspect]
     Active Substance: DOLUTEGRAVIR SODIUM
     Indication: HIV infection
     Dosage: 50 MG, QD
     Route: 065
     Dates: start: 20220722, end: 20220918

REACTIONS (1)
  - Hepatic pain [Recovered/Resolved]

NARRATIVE: CASE EVENT DATE: 20220918
